FAERS Safety Report 8975151 (Version 1)
Quarter: 2012Q4

REPORT INFORMATION
  Report Type: 
  Country: IT (occurrence: IT)
  Receive Date: 20121220
  Receipt Date: 20121220
  Transmission Date: 20130627
  Serious: Yes (Hospitalization)
  Sender: FDA-Public Use
  Company Number: IT-BAYER-2012-132060

PATIENT
  Age: 80 Year
  Sex: Female

DRUGS (9)
  1. CIPROXIN 500 MG FILM-COATED TABLETS [Suspect]
     Indication: BLADDER INFECTION
     Dosage: Daily dose 1000 mg
     Route: 048
     Dates: start: 20121206, end: 20121208
  2. SINTROM [Suspect]
     Indication: CARDIAC VALVE PROSTHESIS USER
     Dosage: 4 mg, PRN
     Route: 048
     Dates: start: 20071208, end: 20121208
  3. LANSOPRAZOLE [Concomitant]
  4. CRESTOR [Concomitant]
  5. LASIX [Concomitant]
  6. EUTIROX [Concomitant]
  7. RESPICUR [Concomitant]
  8. FLIXOTIDE [Concomitant]
  9. TRIATEC [Concomitant]

REACTIONS (4)
  - Epistaxis [Recovering/Resolving]
  - Haematuria [Recovering/Resolving]
  - Hypocoagulable state [Recovering/Resolving]
  - Drug interaction [Recovering/Resolving]
